FAERS Safety Report 25634499 (Version 1)
Quarter: 2025Q3

REPORT INFORMATION
  Report Type: Spontaneous
  Country: GB (occurrence: GB)
  Receive Date: 20250801
  Receipt Date: 20250801
  Transmission Date: 20251020
  Serious: Yes (Other)
  Sender: SANDOZ
  Company Number: None

PATIENT
  Age: 67 Year
  Sex: Female
  Weight: 78 kg

DRUGS (14)
  1. EZETIMIBE [Suspect]
     Active Substance: EZETIMIBE
     Indication: Ill-defined disorder
     Dosage: 10 MG, QD
     Route: 065
     Dates: start: 20250709, end: 20250730
  2. Adcal [Concomitant]
     Indication: Ill-defined disorder
     Dosage: TAKE ONE TWICE DAILY
     Route: 065
     Dates: start: 20230612
  3. AMITRIPTYLINE HYDROCHLORIDE [Concomitant]
     Active Substance: AMITRIPTYLINE HYDROCHLORIDE
     Indication: Ill-defined disorder
     Dosage: TAKE TWO AT NIGHT
     Route: 065
     Dates: start: 20230612
  4. Aproderm [Concomitant]
     Indication: Ill-defined disorder
     Dosage: APPLY TWICE A DAY
     Route: 065
     Dates: start: 20230612
  5. BEMPEDOIC ACID [Concomitant]
     Active Substance: BEMPEDOIC ACID
     Indication: Ill-defined disorder
     Dosage: TAKE ONE DAILY
     Route: 065
     Dates: start: 20250730
  6. CLOBETASONE BUTYRATE [Concomitant]
     Active Substance: CLOBETASONE BUTYRATE
     Indication: Ill-defined disorder
     Dosage: APPLY ONCE DAILY FOR UP TO A WEEK (EARS)
     Route: 065
     Dates: start: 20250512, end: 20250609
  7. ESTRADIOL [Concomitant]
     Active Substance: ESTRADIOL
     Indication: Ill-defined disorder
     Dosage: TAKE ONE DAILY
     Route: 065
     Dates: start: 20250523
  8. Flexitol [Concomitant]
     Indication: Ill-defined disorder
     Route: 065
     Dates: start: 20241024
  9. INDAPAMIDE [Concomitant]
     Active Substance: INDAPAMIDE
     Indication: Ill-defined disorder
     Dosage: TAKE ONE EVERY MORNING
     Route: 065
     Dates: start: 20230612
  10. LERCANIDIPINE HYDROCHLORIDE [Concomitant]
     Active Substance: LERCANIDIPINE HYDROCHLORIDE
     Indication: Ill-defined disorder
     Dosage: TAKE TWO DAILY
     Route: 065
     Dates: start: 20231212
  11. MOMETASONE [Concomitant]
     Active Substance: MOMETASONE
     Indication: Ill-defined disorder
     Dosage: APPLY ONCE DAILY FOR UP TO TWO WEEKS (BODY)
     Route: 065
     Dates: start: 20250512, end: 20250609
  12. OXYBUTYNIN [Concomitant]
     Active Substance: OXYBUTYNIN
     Indication: Ill-defined disorder
     Route: 065
     Dates: start: 20230612
  13. OZEMPIC [Concomitant]
     Active Substance: SEMAGLUTIDE
     Indication: Ill-defined disorder
     Dosage: 0.25 MG, QW
     Route: 058
     Dates: start: 20241113
  14. ACETAMINOPHEN [Concomitant]
     Active Substance: ACETAMINOPHEN
     Indication: Ill-defined disorder
     Dosage: 1-2 TO BE TAKEN FOUR TIMES DAILY WHEN REQUIRED
     Route: 065
     Dates: start: 20230612

REACTIONS (6)
  - Chest discomfort [Unknown]
  - Gastrooesophageal reflux disease [Recovering/Resolving]
  - Malaise [Unknown]
  - Dyspepsia [Unknown]
  - Abdominal pain upper [Recovering/Resolving]
  - Fatigue [Unknown]
